FAERS Safety Report 9243085 (Version 1)
Quarter: 2013Q2

REPORT INFORMATION
  Report Type: Spontaneous
  Country: GB (occurrence: GB)
  Receive Date: 20130419
  Receipt Date: 20130419
  Transmission Date: 20140414
  Serious: Yes (Hospitalization)
  Sender: FDA-Public Use
  Company Number: GB-TEVA-397326ISR

PATIENT
  Age: 74 Year
  Sex: Male

DRUGS (7)
  1. AMOXICILLIN W/CLAVULANIC ACID TEVA [Suspect]
     Indication: INFECTION
     Dosage: 1875 MILLIGRAM DAILY; INDIVIDUAL AMOUNTS NOT STATED
     Route: 065
  2. METRONIDAZOLE [Suspect]
     Indication: INFECTION
     Dosage: 1200 MILLIGRAM DAILY;
     Route: 065
  3. WARFARIN [Suspect]
     Indication: DEEP VEIN THROMBOSIS
     Route: 065
  4. FLUCLOXACILLIN [Suspect]
     Indication: STAPHYLOCOCCAL INFECTION
     Dosage: 2000 MILLIGRAM DAILY;
     Route: 048
  5. FLUCLOXACILLIN [Suspect]
     Dosage: 4 GRAM DAILY;
     Route: 042
  6. PREDNISOLONE [Concomitant]
     Indication: VASCULITIS NECROTISING
     Dosage: 60 MILLIGRAM DAILY; CONCOMITANT TO WARFARIN RECHALLENGE
     Route: 048
  7. CLINDAMYCIN [Concomitant]
     Dosage: 2400 MILLIGRAM DAILY; CONCOMITANT TO IV FLUCLOXACILLIN
     Route: 042

REACTIONS (3)
  - Skin necrosis [Recovering/Resolving]
  - Cellulitis [Unknown]
  - Skin graft [None]
